FAERS Safety Report 7446908-4 (Version None)
Quarter: 2011Q2

REPORT INFORMATION
  Report Type: 
  Country: None (occurrence: None)
  Receive Date: 20110429
  Receipt Date: 20101112
  Transmission Date: 20111010
  Serious: No
  Sender: FDA-Public Use
  Company Number: US-ASTRAZENECA-2010SE54190

PATIENT
  Age: 74 Year
  Sex: Female
  Weight: 99.3 kg

DRUGS (4)
  1. NEXIUM [Suspect]
     Indication: GASTROOESOPHAGEAL REFLUX DISEASE
     Route: 048
     Dates: start: 20101101
  2. VERAPAMIL [Concomitant]
     Indication: HYPERTENSION
  3. HUMULIN 70/30 [Concomitant]
     Indication: DIABETES MELLITUS
  4. THYROID TAB [Concomitant]

REACTIONS (2)
  - BURNING SENSATION [None]
  - ABDOMINAL DISTENSION [None]
